FAERS Safety Report 4320885-7 (Version None)
Quarter: 2004Q1

REPORT INFORMATION
  Report Type: 
  Country: None (occurrence: None)
  Receive Date: 20040318
  Receipt Date: 20040312
  Transmission Date: 20041129
  Serious: Yes (Life-Threatening, Hospitalization)
  Sender: FDA-Public Use
  Company Number: 2004-02-0951

PATIENT
  Age: 59 Year
  Sex: Male

DRUGS (2)
  1. INTRON A [Suspect]
     Indication: BLADDER CANCER
     Dosage: 50 MIU INTRAVESICAL
     Route: 043
     Dates: start: 20020307
  2. BCG VACCINE INJECTABLE [Suspect]
     Indication: BLADDER CANCER
     Dosage: 1/3 AMPULE INTRAVESICAL
     Route: 043
     Dates: start: 20020307, end: 20040203

REACTIONS (2)
  - SEPSIS [None]
  - TUBERCULOSIS [None]
